FAERS Safety Report 7340946-8 (Version None)
Quarter: 2011Q1

REPORT INFORMATION
  Report Type: 
  Country: None (occurrence: None)
  Receive Date: 20110309
  Receipt Date: 20100702
  Transmission Date: 20110831
  Serious: No
  Sender: FDA-Public Use
  Company Number: US-ABBOTT-10P-163-0651789-00

PATIENT
  Sex: Female

DRUGS (3)
  1. NORETHINDRONE ACETATE [Concomitant]
     Indication: ENDOMETRIOSIS
     Route: 048
  2. LUPRON DEPOT [Suspect]
     Indication: ENDOMETRIOSIS
     Dosage: HAS HAD 2 INJECTIONS
     Route: 050
  3. NORETHINDRONE ACETATE [Concomitant]
     Indication: HORMONE REPLACEMENT THERAPY

REACTIONS (1)
  - PAIN [None]
